FAERS Safety Report 23816045 (Version 1)
Quarter: 2024Q2

REPORT INFORMATION
  Report Type: Spontaneous
  Country: US (occurrence: None)
  Receive Date: 20240503
  Receipt Date: 20240503
  Transmission Date: 20240715
  Serious: Yes (Hospitalization)
  Sender: FDA-Public Use
  Company Number: None

PATIENT
  Sex: Female

DRUGS (4)
  1. AUSTEDO [Suspect]
     Active Substance: DEUTETRABENAZINE
     Indication: Essential hypertension
     Dosage: FREQUENCY : TWICE A DAY;?
     Route: 048
     Dates: start: 202305
  2. AUSTEDO [Suspect]
     Active Substance: DEUTETRABENAZINE
     Indication: Sleep terror
  3. AUSTEDO [Suspect]
     Active Substance: DEUTETRABENAZINE
     Indication: Anxiety disorder
  4. AUSTEDO [Suspect]
     Active Substance: DEUTETRABENAZINE
     Indication: Schizoaffective disorder

REACTIONS (2)
  - Hallucination [None]
  - Urinary tract infection [None]
